FAERS Safety Report 19433507 (Version 4)
Quarter: 2021Q3

REPORT INFORMATION
  Report Type: Spontaneous
  Country: IN (occurrence: IN)
  Receive Date: 20210617
  Receipt Date: 20210825
  Transmission Date: 20211014
  Serious: Yes (Other)
  Sender: FDA-Public Use
  Company Number: IN-PFIZER INC-2021032881

PATIENT
  Age: 81 Year
  Sex: Male

DRUGS (8)
  1. DACOPLICE [Suspect]
     Active Substance: DACOMITINIB
     Dosage: UNK
     Dates: start: 20201201
  2. DACOPLICE [Suspect]
     Active Substance: DACOMITINIB
     Dosage: 30 MG, 1X/DAY
     Route: 048
     Dates: start: 20210604
  3. DACOPLICE [Suspect]
     Active Substance: DACOMITINIB
     Dosage: 45 MG
     Dates: start: 20200320
  4. CLINDAMYCIN. [Concomitant]
     Active Substance: CLINDAMYCIN
     Dosage: UNK
  5. DACOPLICE [Suspect]
     Active Substance: DACOMITINIB
     Dosage: UNK
     Dates: start: 20201102
  6. DACOPLICE [Suspect]
     Active Substance: DACOMITINIB
     Dosage: 30 MG, 1X/DAY
     Route: 048
     Dates: start: 20210114
  7. PERINORM [Concomitant]
     Active Substance: METOCLOPRAMIDE HYDROCHLORIDE
     Dosage: 1 DF, UNK
  8. ZOLFRESH [Concomitant]
     Active Substance: ZOLPIDEM TARTRATE
     Dosage: 5 MG, UNK

REACTIONS (3)
  - Sinus bradycardia [Unknown]
  - Oedema peripheral [Unknown]
  - Rash [Not Recovered/Not Resolved]

NARRATIVE: CASE EVENT DATE: 20200320
